FAERS Safety Report 4509205-2 (Version None)
Quarter: 2004Q4

REPORT INFORMATION
  Report Type: 
  Country: None (occurrence: None)
  Receive Date: 20041025
  Receipt Date: 20040119
  Transmission Date: 20050328
  Serious: Yes (Other)
  Sender: FDA-Public Use
  Company Number: NSADSS2001038526

PATIENT
  Age: 51 Year
  Sex: Female
  Weight: 55.3388 kg

DRUGS (4)
  1. REMICADE [Suspect]
     Indication: CROHN'S DISEASE
     Dosage: 5 MG/KG, 1 IN 1 AS NECESSAR, INTRAVENOUS DRIP
     Route: 041
     Dates: start: 20011212, end: 20011212
  2. REMICADE [Suspect]
     Indication: CROHN'S DISEASE
     Dosage: 5 MG/KG, 1 IN 1 AS NECESSAR, INTRAVENOUS DRIP
     Route: 041
     Dates: start: 20011230, end: 20011230
  3. MERCAPTOPURINE [Concomitant]
  4. DIFLUCAN [Concomitant]

REACTIONS (4)
  - ABSCESS [None]
  - ANAEMIA [None]
  - RED BLOOD CELL ABNORMALITY [None]
  - UPPER RESPIRATORY TRACT INFECTION [None]
